FAERS Safety Report 9425499 (Version 2)
Quarter: 2013Q3

REPORT INFORMATION
  Report Type: Spontaneous
  Country: US (occurrence: US)
  Receive Date: 20130729
  Receipt Date: 20130812
  Transmission Date: 20140515
  Serious: No
  Sender: FDA-Public Use
  Company Number: US-ROXANE LABORATORIES, INC.-2013-RO-01215RO

PATIENT
  Sex: 0

DRUGS (1)
  1. MONTELUKAST SODIUM [Suspect]
     Indication: ASTHMA

REACTIONS (4)
  - Drug ineffective [Unknown]
  - Nasal congestion [Unknown]
  - Cough [Unknown]
  - Product quality issue [Unknown]
